FAERS Safety Report 7259556-6 (Version None)
Quarter: 2011Q1

REPORT INFORMATION
  Report Type: 
  Country: None (occurrence: None)
  Receive Date: 20110119
  Receipt Date: 20110106
  Transmission Date: 20110831
  Serious: Yes (Hospitalization)
  Sender: FDA-Public Use
  Company Number: CLOF-1000070

PATIENT
  Age: 76 Year
  Sex: Male
  Weight: 91.6 kg

DRUGS (6)
  1. GLYBURIDE [Concomitant]
  2. REPAGLINIDE [Concomitant]
  3. LISINOPRIL [Concomitant]
  4. PRAMOSONE (HYDROCORTISONE ACETATE, PRAMOCAINE HYDROCHLORIDE) [Concomitant]
  5. CLOFARABINE (CLOFARABINE) [Suspect]
     Indication: MYELODYSPLASTIC SYNDROME
     Dosage: 55 MG, QD, ORAL
     Route: 048
     Dates: start: 20080128, end: 20080201
  6. METFORMIN HCL [Concomitant]

REACTIONS (7)
  - BLOOD CREATININE INCREASED [None]
  - PANCYTOPENIA [None]
  - NEPHROLITHIASIS [None]
  - CYSTITIS [None]
  - HYPOGLYCAEMIA [None]
  - BLOOD UREA INCREASED [None]
  - BLOOD GLUCOSE INCREASED [None]
